FAERS Safety Report 11923758 (Version 6)
Quarter: 2017Q1

REPORT INFORMATION
  Report Type: Spontaneous
  Country: US (occurrence: US)
  Receive Date: 20160118
  Receipt Date: 20170203
  Transmission Date: 20170428
  Serious: Yes (Other)
  Sender: FDA-Public Use
  Company Number: US-PFIZER INC-2015052490

PATIENT
  Age: 85 Year
  Sex: Female
  Weight: 79.83 kg

DRUGS (19)
  1. REVATIO [Suspect]
     Active Substance: SILDENAFIL CITRATE
     Dosage: 20 MG, 3X/DAY
     Route: 048
  2. AZITHROMYCIN ANHYDROUS. [Concomitant]
     Active Substance: AZITHROMYCIN ANHYDROUS
     Dosage: 500 MG, UNK (TRI-PAK)
  3. PREDNISONE. [Concomitant]
     Active Substance: PREDNISONE
     Dosage: 5 MG, UNK, (1000)
  4. DIPHENHYDRAMINE. [Concomitant]
     Active Substance: DIPHENHYDRAMINE
     Dosage: 50 MG, UNK
  5. REVATIO [Suspect]
     Active Substance: SILDENAFIL CITRATE
     Indication: PULMONARY ARTERIAL HYPERTENSION
     Dosage: 20 MG, 3X/DAY
     Route: 048
  6. DIOVAN [Concomitant]
     Active Substance: VALSARTAN
     Dosage: 80 MG, DAILY
     Route: 048
  7. AMOXI CLAV [Concomitant]
     Active Substance: AMOXICILLIN\CLAVULANATE POTASSIUM
     Dosage: UNK, [(AMOXICILLIN TRIHYDRATE 875 MG)/(CLAVULANATE POTASSIUM-125 MG)]
  8. DIOVAN [Concomitant]
     Active Substance: VALSARTAN
     Indication: HYPERTENSION
     Dosage: 160 MG, 1X/DAY
     Route: 048
  9. BENZONATATE. [Concomitant]
     Active Substance: BENZONATATE
     Dosage: 200 MG, UNK
  10. PREDNISONE. [Concomitant]
     Active Substance: PREDNISONE
     Dosage: 20 MG, UNK
  11. CIPROFLOXACIN HCL [Concomitant]
     Active Substance: CIPROFLOXACIN HYDROCHLORIDE
     Dosage: 500 MG, UNK
  12. TORSEMIDE. [Concomitant]
     Active Substance: TORSEMIDE
     Indication: FLUID RETENTION
     Dosage: 20 MG, 2X/DAY
     Route: 048
  13. TORSEMIDE. [Concomitant]
     Active Substance: TORSEMIDE
     Dosage: 20 MG, 1X/DAY
     Route: 048
  14. AZITHROMYCIN ANHYDROUS. [Concomitant]
     Active Substance: AZITHROMYCIN ANHYDROUS
     Dosage: 250 MG, UNK (6 PACK)
  15. BENZONATATE. [Concomitant]
     Active Substance: BENZONATATE
     Dosage: 100 MG, UNK
  16. ADVAIR HFA [Concomitant]
     Active Substance: FLUTICASONE PROPIONATE\SALMETEROL XINAFOATE
     Dosage: UNK, [(FLUTICASONE PROPIONATE-315 MCG)/(SALMETEROL XINAFOATE- 21 MCG)]
  17. SYNTHROID [Concomitant]
     Active Substance: LEVOTHYROXINE SODIUM
     Indication: HYPOTHYROIDISM
     Dosage: 100 UG, DAILY
     Route: 048
  18. MOMETASONE [Concomitant]
     Active Substance: MOMETASONE
     Dosage: 30 ML, UNK, (LOTION)
  19. CEFALEXIN [Concomitant]
     Active Substance: CEPHALEXIN
     Dosage: 500 MG, UNK

REACTIONS (8)
  - Dyspnoea [Recovered/Resolved]
  - Sinusitis [Unknown]
  - Breath odour [Recovered/Resolved]
  - Nasopharyngitis [Recovered/Resolved]
  - Panic attack [Unknown]
  - Drug dose omission [Unknown]
  - Local swelling [Unknown]
  - Kidney infection [Recovered/Resolved]

NARRATIVE: CASE EVENT DATE: 20151227
